FAERS Safety Report 9614254 (Version 2)
Quarter: 2013Q4

REPORT INFORMATION
  Report Type: Report from Study
  Country: AR (occurrence: AR)
  Receive Date: 20131011
  Receipt Date: 20131115
  Transmission Date: 20140711
  Serious: Yes (Other)
  Sender: FDA-Public Use
  Company Number: AR-ROCHE-1286127

PATIENT
  Age: 73 Year
  Sex: Female

DRUGS (1)
  1. RANIBIZUMAB [Suspect]
     Indication: CATARACT
     Route: 050
     Dates: start: 201301

REACTIONS (3)
  - Eye haemorrhage [Recovering/Resolving]
  - Eye discharge [Recovering/Resolving]
  - Vision blurred [Recovering/Resolving]
